FAERS Safety Report 8428870-0 (Version None)
Quarter: 2012Q2

REPORT INFORMATION
  Report Type: 
  Country: None (occurrence: None)
  Receive Date: 20120612
  Receipt Date: 20120606
  Transmission Date: 20120825
  Serious: Yes (Other)
  Sender: FDA-Public Use
  Company Number: JP-PFIZER INC-2012139228

PATIENT
  Age: 63 Year
  Sex: Male

DRUGS (1)
  1. SUTENT [Suspect]
     Indication: RENAL CELL CARCINOMA
     Dosage: UNK
     Route: 048
     Dates: start: 20111202, end: 20111215

REACTIONS (3)
  - TUMOUR LYSIS SYNDROME [None]
  - RENAL IMPAIRMENT [None]
  - BLOOD LACTATE DEHYDROGENASE INCREASED [None]
